FAERS Safety Report 23103163 (Version 2)
Quarter: 2023Q4

REPORT INFORMATION
  Report Type: Spontaneous
  Country: CN (occurrence: CN)
  Receive Date: 20231025
  Receipt Date: 20231031
  Transmission Date: 20240110
  Serious: Yes (Other)
  Sender: FDA-Public Use
  Company Number: CN-002147023-NVSC2023CN226789

PATIENT
  Age: 54 Year
  Sex: Male
  Weight: 58 kg

DRUGS (3)
  1. CYCLOSPORINE [Suspect]
     Active Substance: CYCLOSPORINE
     Indication: Adjuvant therapy
     Dosage: 120 MG, QD
     Route: 042
     Dates: start: 20230715, end: 20230722
  2. CYCLOSPORINE [Suspect]
     Active Substance: CYCLOSPORINE
     Indication: Adjuvant therapy
     Dosage: 100 MG, BID
     Route: 048
     Dates: start: 20230723, end: 20230731
  3. CYCLOSPORINE [Suspect]
     Active Substance: CYCLOSPORINE
     Dosage: 75 MG, BID
     Route: 048
     Dates: start: 20230731, end: 20230806

REACTIONS (2)
  - Acute kidney injury [Recovering/Resolving]
  - Oliguria [Unknown]

NARRATIVE: CASE EVENT DATE: 20230807
